FAERS Safety Report 8157359-1 (Version None)
Quarter: 2012Q1

REPORT INFORMATION
  Report Type: 
  Country: None (occurrence: None)
  Receive Date: 20120217
  Receipt Date: 20120113
  Transmission Date: 20120608
  Serious: Yes (Hospitalization)
  Sender: FDA-Public Use
  Company Number: 001093098

PATIENT
  Sex: Female

DRUGS (3)
  1. PROACTIV 30 DAY KIT (PA30) [Suspect]
  2. PROACTIV 30 DAY KIT (PA30) [Suspect]
  3. PROACTIV 30 DAY KIT (PA30) [Suspect]
     Indication: ACNE
     Dosage: DAILY

REACTIONS (3)
  - EYE PRURITUS [None]
  - DERMATITIS CONTACT [None]
  - SWELLING FACE [None]
